FAERS Safety Report 22587159 (Version 1)
Quarter: 2023Q2

REPORT INFORMATION
  Report Type: Spontaneous
  Country: US (occurrence: US)
  Receive Date: 20230612
  Receipt Date: 20230612
  Transmission Date: 20230722
  Serious: Yes (Other)
  Sender: FDA-Public Use
  Company Number: US-ABBVIE-5284139

PATIENT
  Age: 10 Year
  Sex: Male
  Weight: 38 kg

DRUGS (1)
  1. LUPRON DEPOT-PED [Suspect]
     Active Substance: LEUPROLIDE ACETATE
     Indication: Product used for unknown indication
     Dosage: LAST ADMIN DATE: 2023? PED (3 MONTH)?FORM STRENGTH: 30 MILLIGRAM?DURATION TEXT: 4 WEEKS
     Route: 030
     Dates: start: 20230329

REACTIONS (3)
  - Rash papular [Recovered/Resolved]
  - Skin mass [Recovered/Resolved]
  - Dermatitis allergic [Recovered/Resolved]

NARRATIVE: CASE EVENT DATE: 20230330
